FAERS Safety Report 23318102 (Version 1)
Quarter: 2023Q4

REPORT INFORMATION
  Report Type: Spontaneous
  Country: DE (occurrence: DE)
  Receive Date: 20231219
  Receipt Date: 20231219
  Transmission Date: 20240109
  Serious: Yes (Other)
  Sender: FDA-Public Use
  Company Number: DE-Desitin-2023-02877

PATIENT
  Age: 16 Year
  Sex: Female

DRUGS (6)
  1. LAMOTRIGINE [Suspect]
     Active Substance: LAMOTRIGINE
     Indication: Seizure
     Dosage: 700 MILLIGRAM
     Route: 065
  2. LAMOTRIGINE [Suspect]
     Active Substance: LAMOTRIGINE
     Dosage: 300 MILLIGRAM, TWO TIMES A DAY (300-0-300)
     Route: 065
  3. LACOSAMIDE [Suspect]
     Active Substance: LACOSAMIDE
     Indication: Seizure
     Dosage: 400 MILLIGRAM
     Route: 065
     Dates: start: 202205
  4. LEVETIRACETAM [Suspect]
     Active Substance: LEVETIRACETAM
     Indication: Seizure
     Dosage: 3000 MILLIGRAM
     Route: 065
     Dates: start: 202202
  5. OXCARBAZEPINE [Suspect]
     Active Substance: OXCARBAZEPINE
     Indication: Seizure
     Dosage: 1350 MILLIGRAM, ONCE A DAY (750-0-600)
     Route: 065
  6. OXCARBAZEPINE [Suspect]
     Active Substance: OXCARBAZEPINE
     Dosage: 1500 MILLIGRAM
     Route: 065
     Dates: start: 202208

REACTIONS (6)
  - Drug ineffective [Unknown]
  - Tremor [Unknown]
  - Vomiting [Unknown]
  - Somnolence [Unknown]
  - Nausea [Unknown]
  - Ataxia [Unknown]

NARRATIVE: CASE EVENT DATE: 20220101
